FAERS Safety Report 22671884 (Version 2)
Quarter: 2025Q2

REPORT INFORMATION
  Report Type: Spontaneous
  Country: CA (occurrence: CA)
  Receive Date: 20230705
  Receipt Date: 20250624
  Transmission Date: 20250716
  Serious: Yes (Other)
  Sender: ORGANON
  Company Number: CA-ORGANON-O2307CAN000328

PATIENT
  Age: 33 Year

DRUGS (5)
  1. REMERON [Suspect]
     Active Substance: MIRTAZAPINE
     Indication: Depression
     Route: 065
  2. ARIPIPRAZOLE [Suspect]
     Active Substance: ARIPIPRAZOLE
     Indication: Depression
     Dosage: 5 MILLIGRAM, 1 EVERY 12 HOURS
     Route: 065
  3. LITHIUM CARBONATE [Suspect]
     Active Substance: LITHIUM CARBONATE
     Indication: Depression
     Route: 065
  4. OLANZAPINE [Suspect]
     Active Substance: OLANZAPINE
     Indication: Depression
     Route: 065
  5. VENLAFAXINE [Suspect]
     Active Substance: VENLAFAXINE HYDROCHLORIDE
     Indication: Depression
     Route: 065

REACTIONS (1)
  - Drug ineffective [Unknown]
